FAERS Safety Report 9908048 (Version 1)
Quarter: 2014Q1

REPORT INFORMATION
  Report Type: Spontaneous
  Country: US (occurrence: None)
  Receive Date: 20140211
  Receipt Date: 20140211
  Transmission Date: 20141002
  Serious: Yes (Other)
  Sender: FDA-Public Use
  Company Number: CC13-1236

PATIENT
  Sex: Male

DRUGS (1)
  1. ATRIDOX [Suspect]
     Dosage: 1 INJECTION ONCE
     Dates: start: 201311

REACTIONS (2)
  - Burning sensation [None]
  - Ill-defined disorder [None]
